FAERS Safety Report 24354591 (Version 1)
Quarter: 2024Q3

REPORT INFORMATION
  Report Type: Spontaneous
  Country: SE (occurrence: SE)
  Receive Date: 20240923
  Receipt Date: 20240923
  Transmission Date: 20241017
  Serious: Yes (Other)
  Sender: PURDUE
  Company Number: SE-PURDUE-USA-2024-0312113

PATIENT
  Age: 80 Year
  Sex: Male

DRUGS (3)
  1. OXYCODONE HYDROCHLORIDE [Interacting]
     Active Substance: OXYCODONE HYDROCHLORIDE
     Indication: Product used for unknown indication
     Dosage: 1-2 V B
     Route: 048
     Dates: start: 20240709
  2. NALOXEGOL OXALATE [Interacting]
     Active Substance: NALOXEGOL OXALATE
     Indication: Constipation
     Dosage: 25 MG X 1
     Route: 048
     Dates: start: 20240904, end: 20240904
  3. FENTANYL [Interacting]
     Active Substance: FENTANYL\FENTANYL CITRATE
     Indication: Product used for unknown indication
     Dosage: 100 MICROGRAMS, BYTES EVERY 3 DAYS
     Route: 003
     Dates: start: 20240809

REACTIONS (3)
  - Drug effect less than expected [Recovering/Resolving]
  - Drug interaction [Recovering/Resolving]
  - Quality of life decreased [Recovering/Resolving]

NARRATIVE: CASE EVENT DATE: 20240904
